FAERS Safety Report 24831432 (Version 1)
Quarter: 2025Q1

REPORT INFORMATION
  Report Type: Spontaneous
  Country: US (occurrence: US)
  Receive Date: 20250110
  Receipt Date: 20250110
  Transmission Date: 20250409
  Serious: No
  Sender: SANOFI AVENTIS
  Company Number: US-SA-2025SA008992

PATIENT
  Age: 69 Year
  Sex: Male
  Weight: 92 kg

DRUGS (5)
  1. DUPIXENT [Suspect]
     Active Substance: DUPILUMAB
     Indication: Neurodermatitis
     Route: 058
     Dates: start: 202412, end: 202412
  2. GABAPENTIN [Concomitant]
     Active Substance: GABAPENTIN
  3. FLUOCINOLONE [Concomitant]
     Active Substance: FLUOCINOLONE
  4. SILDENAFIL [Concomitant]
     Active Substance: SILDENAFIL
  5. PANTOPRAZOLE SODIUM [Concomitant]
     Active Substance: PANTOPRAZOLE SODIUM

REACTIONS (1)
  - Neurodermatitis [Recovering/Resolving]
